FAERS Safety Report 8215077-5 (Version None)
Quarter: 2012Q1

REPORT INFORMATION
  Report Type: 
  Country: None (occurrence: None)
  Receive Date: 20120316
  Receipt Date: 20120314
  Transmission Date: 20120608
  Serious: No
  Sender: FDA-Public Use
  Company Number: US-TEVA-328061USA

PATIENT
  Sex: Female

DRUGS (2)
  1. IRON [Concomitant]
     Indication: MINERAL SUPPLEMENTATION
  2. COPAXONE [Suspect]
     Indication: MULTIPLE SCLEROSIS
     Route: 058
     Dates: start: 20100101, end: 20120229

REACTIONS (8)
  - CHEST DISCOMFORT [None]
  - THROAT TIGHTNESS [None]
  - ABDOMINAL PAIN [None]
  - IMMEDIATE POST-INJECTION REACTION [None]
  - INJECTION SITE PAIN [None]
  - CHILLS [None]
  - FLUSHING [None]
  - VAGINAL HAEMORRHAGE [None]
